FAERS Safety Report 12110246 (Version 1)
Quarter: 2016Q1

REPORT INFORMATION
  Report Type: Report from Study
  Country: US (occurrence: US)
  Receive Date: 20160224
  Receipt Date: 20160224
  Transmission Date: 20160526
  Serious: Yes (Death)
  Sender: FDA-Public Use
  Company Number: US-ACTELION-A-US2016-131709

PATIENT
  Age: 77 Year
  Sex: Female

DRUGS (1)
  1. VELETRI [Suspect]
     Active Substance: EPOPROSTENOL
     Indication: PULMONARY ARTERIAL HYPERTENSION
     Dosage: 34.5 NG/KG, PER MIN
     Route: 042
     Dates: start: 20150326, end: 20160211

REACTIONS (1)
  - Death [Fatal]

NARRATIVE: CASE EVENT DATE: 20160211
